FAERS Safety Report 10052701 (Version 1)
Quarter: 2014Q2

REPORT INFORMATION
  Report Type: Spontaneous
  Country: ES (occurrence: ES)
  Receive Date: 20140402
  Receipt Date: 20140402
  Transmission Date: 20141212
  Serious: Yes (Other)
  Sender: FDA-Public Use
  Company Number: ES-PFIZER INC-2014089259

PATIENT
  Age: 54 Year
  Sex: Female

DRUGS (2)
  1. SUTENT [Suspect]
     Indication: CLEAR CELL RENAL CELL CARCINOMA
     Dosage: 50 MG, CYCLIC, 1XDAY 4/2 SCHEDULE
     Dates: start: 201306, end: 2013
  2. ENALAPRIL [Concomitant]
     Dosage: 5 MG, 1X/DAY

REACTIONS (5)
  - Intestinal fistula [Unknown]
  - Lymphocele [Unknown]
  - Asthenia [Unknown]
  - Mucosal inflammation [Unknown]
  - Back pain [Unknown]
